FAERS Safety Report 7456167-4 (Version None)
Quarter: 2011Q2

REPORT INFORMATION
  Report Type: 
  Country: None (occurrence: None)
  Receive Date: 20110426
  Receipt Date: 20110412
  Transmission Date: 20111010
  Serious: Yes (Hospitalization)
  Sender: FDA-Public Use
  Company Number: 031243

PATIENT
  Sex: Female
  Weight: 73.9 kg

DRUGS (3)
  1. MELPHALAN HYDROCHLORIDE [Concomitant]
  2. CIMZIA [Suspect]
     Indication: CROHN'S DISEASE
     Dosage: (400 MG 1X/2 WEEKS SUBCUTANEOUS)
     Route: 058
     Dates: start: 20101123
  3. POLYETHYLENE GLYCOL [Concomitant]

REACTIONS (1)
  - GASTROINTESTINAL SURGERY [None]
